FAERS Safety Report 9015823 (Version 1)
Quarter: 2012Q4

REPORT INFORMATION
  Report Type: Spontaneous
  Country: US (occurrence: None)
  Receive Date: 20121231
  Receipt Date: 20121231
  Transmission Date: 20130627
  Serious: Yes (Hospitalization)
  Sender: FDA-Public Use
  Company Number: DKLU1087396

PATIENT
  Age: 47 Year
  Sex: Female

DRUGS (7)
  1. ONFI (CLOBAZAM) (CLOBAZAM) (10 MG, TABLET) [Suspect]
     Indication: PRODUCT USED FOR UNKNOWN INDICATION
     Dosage: 20 mg milligram(s) 2 in 1 D
     Dates: end: 201207
  2. DEPAKOTE [Concomitant]
  3. DIASTAT [Concomitant]
  4. KEPPRA [Concomitant]
  5. ATIVAN [Concomitant]
  6. TOPAMAX [Concomitant]
  7. KLONOPIN [Concomitant]

REACTIONS (3)
  - Hypersomnia [None]
  - Mobility decreased [None]
  - Weight decreased [None]
